FAERS Safety Report 9280213 (Version 1)
Quarter: 2012Q4

REPORT INFORMATION
  Report Type: Spontaneous
  Country: US (occurrence: None)
  Receive Date: 20120919
  Receipt Date: 20120919
  Transmission Date: 20130627
  Serious: Yes (Disabling, Other)
  Sender: FDA-Public Use
  Company Number: USA/USA/12/0025789

PATIENT
  Age: 53 Year
  Sex: Female
  Weight: 120.2 kg

DRUGS (7)
  1. LEVOFLOXACIN TABLETS 500 MG (LEVOFLOXACIN) [Suspect]
     Indication: RESPIRATORY INFECTION
     Dosage: 1 in 1D,
     Route: 048
     Dates: start: 20120615
  2. METOPROLOL (METOPROLOL) [Concomitant]
  3. METOPROLOL (METOPROLOL) [Concomitant]
  4. METOPROLOL (METOPROLOL) [Concomitant]
  5. FISH OIL (FISH OIL) [Concomitant]
  6. MULTIVITAMIN (VIGRAN) [Concomitant]
  7. ELAVIL (AMITRIPTYLINE HYDROCHLORIDE) [Concomitant]

REACTIONS (6)
  - Pain in extremity [None]
  - Oedema peripheral [None]
  - Tendon pain [None]
  - Asthenia [None]
  - Mobility decreased [None]
  - Quality of life decreased [None]
